FAERS Safety Report 21917847 (Version 1)
Quarter: 2023Q1

REPORT INFORMATION
  Report Type: Spontaneous
  Country: US (occurrence: US)
  Receive Date: 20230127
  Receipt Date: 20230127
  Transmission Date: 20230418
  Serious: Yes (Other)
  Sender: FDA-Public Use
  Company Number: US-BRISTOL-MYERS SQUIBB COMPANY-BMS-2019-029971

PATIENT
  Age: 4 Year
  Sex: Female

DRUGS (2)
  1. AZACITIDINE [Suspect]
     Active Substance: AZACITIDINE
     Indication: Acute myeloid leukaemia
     Dosage: DAILY X 5 DAYS
     Route: 042
  2. AZACITIDINE [Suspect]
     Active Substance: AZACITIDINE
     Dosage: DAILY X 5 DAYS
     Route: 042

REACTIONS (4)
  - Staphylococcal sepsis [Unknown]
  - Herpes simplex reactivation [Unknown]
  - Pseudomonal sepsis [Unknown]
  - Off label use [Unknown]
